FAERS Safety Report 11448234 (Version 1)
Quarter: 2015Q3

REPORT INFORMATION
  Report Type: Spontaneous
  Country: US (occurrence: US)
  Receive Date: 20150831
  Receipt Date: 20150831
  Transmission Date: 20151125
  Serious: No
  Sender: FDA-Public Use
  Company Number: US-ELI_LILLY_AND_COMPANY-US200906004349

PATIENT
  Age: 66 Year
  Sex: Female

DRUGS (3)
  1. ZIAC [Concomitant]
     Active Substance: BISOPROLOL FUMARATE\HYDROCHLOROTHIAZIDE
     Indication: BLOOD PRESSURE MEASUREMENT
  2. ETODOLAC. [Concomitant]
     Active Substance: ETODOLAC
  3. CYMBALTA [Suspect]
     Active Substance: DULOXETINE HYDROCHLORIDE
     Indication: ARTHRITIS
     Dosage: 30 MG, UNK
     Dates: start: 20090605

REACTIONS (2)
  - Off label use [Not Recovered/Not Resolved]
  - Haemorrhage [Not Recovered/Not Resolved]

NARRATIVE: CASE EVENT DATE: 200906
